FAERS Safety Report 16266443 (Version 2)
Quarter: 2019Q2

REPORT INFORMATION
  Report Type: Spontaneous
  Country: DE (occurrence: DE)
  Receive Date: 20190502
  Receipt Date: 20190620
  Transmission Date: 20190711
  Serious: Yes (Death)
  Sender: FDA-Public Use
  Company Number: DE-MYLANLABS-2019M1042359

PATIENT
  Age: 62 Year
  Sex: Female
  Weight: 81 kg

DRUGS (5)
  1. DOXEPIN [Suspect]
     Active Substance: DOXEPIN
     Indication: DEPRESSION
     Dosage: UNK UNK, BID (50-0-100 MG)
     Route: 048
     Dates: start: 1999
  2. IRBESARTAN PLUS HCT HENNIG [Concomitant]
     Indication: HYPERTENSION
     Dosage: 1 DOSAGE FORM, QD (DAILY DOSE: 1 DF DOSAGE FORM EVERY DAYS)
     Route: 048
  3. CHLORPHENAMINE [Interacting]
     Active Substance: CHLORPHENIRAMINE MALEATE
     Indication: NASOPHARYNGITIS
     Dosage: UNK
     Route: 048
  4. METOPROLOL SUCCINATE. [Concomitant]
     Active Substance: METOPROLOL SUCCINATE
     Indication: HYPERTENSION
     Dosage: 47.5 MILLIGRAM, QD (DAILY DOSE: 47.5 MG MILLGRAM(S) EVERY DAYS)
     Route: 048
  5. METFORMIN [Concomitant]
     Active Substance: METFORMIN HYDROCHLORIDE
     Indication: TYPE 2 DIABETES MELLITUS
     Dosage: 500 MILLIGRAM, QD (DAILY DOSE: 500 MG MILLGRAM(S) EVERY DAYS)
     Route: 048

REACTIONS (5)
  - Serotonin syndrome [Fatal]
  - Arrhythmia [Fatal]
  - Accidental overdose [Fatal]
  - Therapeutic product effect increased [Fatal]
  - Drug interaction [Fatal]

NARRATIVE: CASE EVENT DATE: 20180317
